FAERS Safety Report 9098093 (Version 1)
Quarter: 2013Q1

REPORT INFORMATION
  Report Type: Spontaneous
  Country: NG (occurrence: NG)
  Receive Date: 20130213
  Receipt Date: 20130213
  Transmission Date: 20140127
  Serious: Yes (Death)
  Sender: FDA-Public Use
  Company Number: NG-SANOFI-AVENTIS-2013SA010810

PATIENT
  Sex: Male

DRUGS (1)
  1. CLEXANE [Suspect]
     Indication: THROMBOSIS PROPHYLAXIS
     Route: 065

REACTIONS (1)
  - Drug ineffective [Fatal]
